FAERS Safety Report 17485445 (Version 2)
Quarter: 2021Q1

REPORT INFORMATION
  Report Type: Spontaneous
  Country: FR (occurrence: FR)
  Receive Date: 20200302
  Receipt Date: 20210318
  Transmission Date: 20210419
  Serious: Yes (Life-Threatening, Hospitalization)
  Sender: FDA-Public Use
  Company Number: FR-BIOGEN-2020BI00843978

PATIENT
  Age: 62 Year
  Sex: Female
  Weight: 69 kg

DRUGS (6)
  1. OCREVUS [Suspect]
     Active Substance: OCRELIZUMAB
     Indication: PRIMARY PROGRESSIVE MULTIPLE SCLEROSIS
     Route: 042
     Dates: start: 20190901
  2. FAMPYRA [Suspect]
     Active Substance: DALFAMPRIDINE
     Route: 048
     Dates: start: 20150201
  3. LYRICA [Suspect]
     Active Substance: PREGABALIN
     Route: 048
     Dates: start: 20150101
  4. FAMPYRA [Suspect]
     Active Substance: DALFAMPRIDINE
     Indication: PRIMARY PROGRESSIVE MULTIPLE SCLEROSIS
     Route: 048
     Dates: start: 20150201
  5. OCREVUS [Suspect]
     Active Substance: OCRELIZUMAB
     Route: 042
     Dates: start: 20190901
  6. LYRICA [Suspect]
     Active Substance: PREGABALIN
     Indication: NEURALGIA
     Route: 048
     Dates: start: 20150101

REACTIONS (1)
  - Pancreatitis acute [Recovered/Resolved]

NARRATIVE: CASE EVENT DATE: 20191211
